FAERS Safety Report 9743547 (Version 1)
Quarter: 2013Q4

REPORT INFORMATION
  Report Type: Report from Study
  Country: BR (occurrence: BR)
  Receive Date: 20131210
  Receipt Date: 20131210
  Transmission Date: 20140711
  Serious: Yes (Hospitalization, Other)
  Sender: FDA-Public Use
  Company Number: PHHY2013BR144417

PATIENT
  Age: 88 Year
  Sex: Female

DRUGS (4)
  1. ACLASTA [Suspect]
     Indication: OSTEOPOROSIS
     Dosage: 5 MG, UNK
     Route: 042
     Dates: start: 2010
  2. ADDERA D3 [Concomitant]
     Dosage: UNK UKN, UNK
  3. CALTREN [Concomitant]
     Dosage: UNK UKN, UNK
  4. OSTEONUTRI [Concomitant]
     Dosage: UNK UKN, UNK

REACTIONS (2)
  - Femur fracture [Recovering/Resolving]
  - Fall [Recovering/Resolving]
